FAERS Safety Report 25362559 (Version 1)
Quarter: 2025Q2

REPORT INFORMATION
  Report Type: Spontaneous
  Country: US (occurrence: None)
  Receive Date: 20250524
  Receipt Date: 20250524
  Transmission Date: 20250717
  Serious: Yes (Other)
  Sender: FDA-CTU
  Company Number: None

PATIENT
  Age: 28 Year
  Sex: Female
  Weight: 107.1 kg

DRUGS (13)
  1. NITRO-BID [Suspect]
     Active Substance: NITROGLYCERIN
     Indication: Anal fissure
     Dosage: 60 G GRAMS EVERY 6 HOURS RECTAL
     Route: 054
     Dates: start: 20250523, end: 20250523
  2. SUNOSI [Concomitant]
     Active Substance: SOLRIAMFETOL
  3. PANTOPRAZOLE [Concomitant]
     Active Substance: PANTOPRAZOLE
  4. METFORMIN [Concomitant]
     Active Substance: METFORMIN HYDROCHLORIDE
  5. IVABRADINE [Concomitant]
     Active Substance: IVABRADINE
  6. ATENOLOL [Concomitant]
     Active Substance: ATENOLOL
  7. LEVOCETIRIZINE [Concomitant]
     Active Substance: LEVOCETIRIZINE
  8. BUSPIRONE [Concomitant]
     Active Substance: BUSPIRONE HYDROCHLORIDE
  9. NORETHINDRONE ACETATE [Concomitant]
     Active Substance: NORETHINDRONE ACETATE
  10. VENLAFAXINE HYDROCHLORIDE [Suspect]
     Active Substance: VENLAFAXINE HYDROCHLORIDE
  11. CALCIUM\VITAMIN D [Concomitant]
     Active Substance: CALCIUM\VITAMIN D
  12. FISH OIL [Concomitant]
     Active Substance: FISH OIL
  13. CANNABIS SATIVA SUBSP. INDICA TOP [Concomitant]
     Active Substance: CANNABIS SATIVA SUBSP. INDICA TOP

REACTIONS (4)
  - Incorrect product formulation administered [None]
  - Headache [None]
  - Dizziness [None]
  - Lethargy [None]

NARRATIVE: CASE EVENT DATE: 20250523
